FAERS Safety Report 23735964 (Version 1)
Quarter: 2024Q2

REPORT INFORMATION
  Report Type: Spontaneous
  Country: IL (occurrence: None)
  Receive Date: 20240412
  Receipt Date: 20240412
  Transmission Date: 20240715
  Serious: Yes (Hospitalization, Other)
  Sender: FDA-Public Use
  Company Number: IL-ROCHE-3538161

PATIENT
  Age: 69 Year
  Sex: Female

DRUGS (8)
  1. AVASTIN [Suspect]
     Active Substance: BEVACIZUMAB
     Indication: Breast cancer
     Route: 065
     Dates: start: 20231005
  2. AVASTIN [Suspect]
     Active Substance: BEVACIZUMAB
     Indication: Pulmonary embolism
  3. DEXAMETHASONE [Concomitant]
     Active Substance: DEXAMETHASONE
     Route: 048
  4. OMEPRAZOLE [Concomitant]
     Active Substance: OMEPRAZOLE
     Route: 048
  5. MEMOX [Concomitant]
     Route: 048
  6. LETROZOLE [Concomitant]
     Active Substance: LETROZOLE
     Dates: start: 20210125
  7. IBRANCE [Concomitant]
     Active Substance: PALBOCICLIB
     Dates: start: 20210125
  8. XGEVA [Concomitant]
     Active Substance: DENOSUMAB
     Dates: start: 20210125

REACTIONS (8)
  - Metastases to central nervous system [Unknown]
  - Resorption bone increased [Unknown]
  - Tumour necrosis [Unknown]
  - Lung neoplasm malignant [Unknown]
  - Gait disturbance [Unknown]
  - Decreased appetite [Unknown]
  - Drug ineffective [Unknown]
  - Intestinal mass [Unknown]
